FAERS Safety Report 4753986-X (Version None)
Quarter: 2005Q3

REPORT INFORMATION
  Report Type: 
  Country: None (occurrence: None)
  Receive Date: 20050826
  Receipt Date: 20050822
  Transmission Date: 20060218
  Serious: Yes (Life-Threatening)
  Sender: FDA-Public Use
  Company Number: JP-MERCK-0508USA03811

PATIENT
  Age: 84 Year
  Sex: Female

DRUGS (3)
  1. SOLON [Concomitant]
     Indication: GASTRITIS
     Route: 048
     Dates: start: 20050801, end: 20050807
  2. FOSAMAX [Suspect]
     Indication: OSTEOPOROSIS
     Route: 048
     Dates: start: 20050807, end: 20050808
  3. ETODOLAC [Concomitant]
     Indication: PAIN
     Route: 048
     Dates: start: 20050728, end: 20050807

REACTIONS (1)
  - CONVULSION [None]
